FAERS Safety Report 5921231-5 (Version None)
Quarter: 2008Q4

REPORT INFORMATION
  Report Type: 
  Country: None (occurrence: None)
  Receive Date: 20081016
  Receipt Date: 20081008
  Transmission Date: 20090506
  Serious: Yes (Life-Threatening)
  Sender: FDA-Public Use
  Company Number: US-B.I. PHARMACEUTICALS,INC./RIDGEFIELD-2008-BP-15805BP

PATIENT
  Age: 3 Year
  Sex: Male

DRUGS (2)
  1. ATROVENT HFA [Suspect]
     Indication: ASTHMA
     Route: 055
     Dates: start: 20080929
  2. XOPENEX [Concomitant]

REACTIONS (6)
  - ANAPHYLACTIC REACTION [None]
  - DYSPNOEA [None]
  - ERYTHEMA [None]
  - LOSS OF CONSCIOUSNESS [None]
  - SWELLING FACE [None]
  - URTICARIA [None]
